FAERS Safety Report 13299876 (Version 1)
Quarter: 2017Q1

REPORT INFORMATION
  Report Type: Spontaneous
  Country: US (occurrence: US)
  Receive Date: 20170306
  Receipt Date: 20170306
  Transmission Date: 20170428
  Serious: No
  Sender: FDA-Public Use
  Company Number: US-009507513-1702USA006155

PATIENT
  Sex: Female

DRUGS (2)
  1. NEXPLANON [Suspect]
     Active Substance: ETONOGESTREL
     Indication: CONTRACEPTION
     Dosage: 1 IMPLANT ON THE LEFT ARM, EVERY 3 YEARS
     Route: 059
  2. MOTRIN [Concomitant]
     Active Substance: IBUPROFEN

REACTIONS (5)
  - Paraesthesia [Not Recovered/Not Resolved]
  - Insomnia [Unknown]
  - Pain [Not Recovered/Not Resolved]
  - Dizziness [Unknown]
  - Movement disorder [Unknown]

NARRATIVE: CASE EVENT DATE: 20170211
